FAERS Safety Report 4718957-8 (Version None)
Quarter: 2005Q3

REPORT INFORMATION
  Report Type: 
  Country: None (occurrence: None)
  Receive Date: 20050719
  Receipt Date: 20050714
  Transmission Date: 20060218
  Serious: Yes (Other)
  Sender: FDA-Public Use
  Company Number: DE_050716398

PATIENT
  Age: 37 Year
  Sex: Male

DRUGS (1)
  1. ZYPREXA [Suspect]
     Indication: MANIA
     Dosage: 7.5 MG DAY
     Dates: start: 20040101

REACTIONS (3)
  - BLOOD PROLACTIN INCREASED [None]
  - BREAST PAIN [None]
  - OBESITY [None]
